FAERS Safety Report 6604675-8 (Version None)
Quarter: 2010Q1

REPORT INFORMATION
  Report Type: 
  Country: None (occurrence: None)
  Receive Date: 20100226
  Receipt Date: 20100215
  Transmission Date: 20100710
  Serious: Yes (Death)
  Sender: FDA-Public Use
  Company Number: GB-PFIZER INC-2010019534

PATIENT
  Age: 73 Year
  Sex: Female

DRUGS (3)
  1. SUNITINIB MALATE [Suspect]
     Indication: RENAL CELL CARCINOMA
     Dosage: 25 MG, 1X/DAY
     Route: 048
     Dates: start: 20091118, end: 20100205
  2. ATENOLOL [Concomitant]
  3. GLICLAZIDE [Concomitant]

REACTIONS (1)
  - HEPATIC FAILURE [None]
